FAERS Safety Report 8730320 (Version 4)
Quarter: 2012Q4

REPORT INFORMATION
  Report Type: 
  Country: US (occurrence: US)
  Receive Date: 20120817
  Receipt Date: 20121009
  Transmission Date: 20130627
  Serious: Yes (Life-Threatening, Hospitalization, Other)
  Sender: FDA-Public Use
  Company Number: US-ASTRAZENECA-2012SE57156

PATIENT
  Age: 47 Year
  Sex: Female
  Weight: 83.9 kg

DRUGS (14)
  1. SEROQUEL [Suspect]
     Indication: POST-TRAUMATIC STRESS DISORDER
     Route: 048
  2. SEROQUEL [Suspect]
     Indication: BIPOLAR DISORDER
     Route: 048
  3. SEROQUEL [Suspect]
     Indication: MANIA
     Route: 048
  4. SEROQUEL [Suspect]
     Indication: MAJOR DEPRESSION
     Route: 048
  5. PRILOSEC OTC [Suspect]
     Route: 048
  6. CELEXA [Concomitant]
  7. CYMBALTA [Concomitant]
  8. KLONOPIN [Concomitant]
  9. AMBIEN [Concomitant]
  10. METFORMIN [Concomitant]
  11. GLYBURIDE [Concomitant]
  12. FISH OIL [Concomitant]
  13. FLAXSEED OIL [Concomitant]
  14. BENADRYL [Concomitant]

REACTIONS (13)
  - Suicide attempt [Unknown]
  - Suicidal ideation [Unknown]
  - Crying [Unknown]
  - Social phobia [Unknown]
  - Communication disorder [Unknown]
  - Adverse event [Unknown]
  - Multiple allergies [Unknown]
  - Depression [Unknown]
  - Malaise [Unknown]
  - Pruritus [Unknown]
  - Migraine [Unknown]
  - Insomnia [Unknown]
  - Intentional drug misuse [Unknown]
